FAERS Safety Report 6161694-6 (Version None)
Quarter: 2009Q2

REPORT INFORMATION
  Report Type: 
  Country: None (occurrence: None)
  Receive Date: 20090421
  Receipt Date: 20090409
  Transmission Date: 20091009
  Serious: Yes (Disabling)
  Sender: FDA-Public Use
  Company Number: GB-TEVA-191205ISR

PATIENT
  Age: 58 Year
  Sex: Male
  Weight: 107.7 kg

DRUGS (2)
  1. SIMVASTATIN [Suspect]
     Indication: HYPERLIPIDAEMIA
     Route: 048
  2. EXENATIDE [Suspect]
     Indication: DIABETES MELLITUS
     Route: 058
     Dates: start: 20080424

REACTIONS (3)
  - PAIN IN EXTREMITY [None]
  - TENDERNESS [None]
  - THROMBOSIS [None]
